FAERS Safety Report 8943209 (Version 1)
Quarter: 2012Q4

REPORT INFORMATION
  Report Type: 
  Country: CA (occurrence: CA)
  Receive Date: 20121204
  Receipt Date: 20121204
  Transmission Date: 20130627
  Serious: Yes (Other)
  Sender: FDA-Public Use
  Company Number: PHHY2012CA083421

PATIENT
  Sex: Female

DRUGS (6)
  1. ACLASTA [Suspect]
     Indication: OSTEOPOROSIS
     Dosage: 5 mg, once a year
     Route: 042
     Dates: start: 20101110
  2. ACLASTA [Suspect]
     Dosage: 5 mg, once a year
     Route: 042
     Dates: start: 20111115
  3. AMLODIPINE [Concomitant]
  4. FOSINOPRIL [Concomitant]
  5. CALCIUM [Concomitant]
  6. VITAMIN D [Concomitant]

REACTIONS (2)
  - Osteonecrosis [Unknown]
  - Hip fracture [Unknown]
